FAERS Safety Report 4356338-X (Version None)
Quarter: 2004Q2

REPORT INFORMATION
  Report Type: 
  Country: None (occurrence: None)
  Receive Date: 20040506
  Receipt Date: 20040421
  Transmission Date: 20050107
  Serious: Yes (Other)
  Sender: FDA-Public Use
  Company Number: 200411453GDS

PATIENT
  Age: 55 Year
  Sex: Male

DRUGS (15)
  1. MICARDIS [Suspect]
     Indication: CEREBROVASCULAR ACCIDENT PROPHYLAXIS
     Dosage: SEE IMAGE
     Route: 048
     Dates: start: 20030402
  2. MICARDIS [Suspect]
     Indication: MYOCARDIAL INFARCTION
     Dosage: SEE IMAGE
     Route: 048
     Dates: start: 20030402
  3. MICARDIS [Suspect]
     Indication: PROPHYLAXIS
     Dosage: SEE IMAGE
     Route: 048
     Dates: start: 20030402
  4. MICARDIS [Suspect]
     Indication: CEREBROVASCULAR ACCIDENT PROPHYLAXIS
     Dosage: SEE IMAGE
     Route: 048
     Dates: start: 20040109
  5. MICARDIS [Suspect]
     Indication: MYOCARDIAL INFARCTION
     Dosage: SEE IMAGE
     Route: 048
     Dates: start: 20040109
  6. MICARDIS [Suspect]
     Indication: PROPHYLAXIS
     Dosage: SEE IMAGE
     Route: 048
     Dates: start: 20040109
  7. RAMIPRIL [Suspect]
     Indication: CEREBROVASCULAR ACCIDENT PROPHYLAXIS
     Dosage: SEE IMAGE
     Route: 048
     Dates: start: 20030402
  8. RAMIPRIL [Suspect]
     Indication: MYOCARDIAL INFARCTION
     Dosage: SEE IMAGE
     Route: 048
     Dates: start: 20030402
  9. RAMIPRIL [Suspect]
     Indication: PROPHYLAXIS
     Dosage: SEE IMAGE
     Route: 048
     Dates: start: 20030402
  10. RAMIPRIL [Suspect]
     Indication: CEREBROVASCULAR ACCIDENT PROPHYLAXIS
     Dosage: SEE IMAGE
     Route: 048
     Dates: start: 20040109
  11. RAMIPRIL [Suspect]
     Indication: MYOCARDIAL INFARCTION
     Dosage: SEE IMAGE
     Route: 048
     Dates: start: 20040109
  12. RAMIPRIL [Suspect]
     Indication: PROPHYLAXIS
     Dosage: SEE IMAGE
     Route: 048
     Dates: start: 20040109
  13. NITRATE (GLYCERYL TRINITRATE) [Suspect]
  14. ASPIRIN [Suspect]
  15. STATINS (UNCODEABLE ^UNCLASIFIABLE^) [Suspect]

REACTIONS (2)
  - HENOCH-SCHONLEIN PURPURA [None]
  - PARAPSORIASIS [None]
